FAERS Safety Report 10668689 (Version 1)
Quarter: 2014Q4

REPORT INFORMATION
  Report Type: Spontaneous
  Country: US (occurrence: US)
  Receive Date: 20141222
  Receipt Date: 20141222
  Transmission Date: 20150529
  Serious: Yes (Death, Other)
  Sender: FDA-Public Use
  Company Number: US-CELGENE-USA-2014123396

PATIENT

DRUGS (8)
  1. VIDAZA [Suspect]
     Active Substance: AZACITIDINE
     Indication: MYELODYSPLASTIC SYNDROME
  2. BELINOSTAT [Suspect]
     Active Substance: BELINOSTAT
     Indication: ACUTE MYELOID LEUKAEMIA
     Dosage: DOSE ESCALATING UP TO 1000MG/M2
     Route: 041
  3. VIDAZA [Suspect]
     Active Substance: AZACITIDINE
     Indication: ACUTE MYELOID LEUKAEMIA
     Route: 058
  4. VIDAZA [Suspect]
     Active Substance: AZACITIDINE
     Indication: MYELOFIBROSIS
  5. BELINOSTAT [Suspect]
     Active Substance: BELINOSTAT
     Indication: MYELOFIBROSIS
  6. BELINOSTAT [Suspect]
     Active Substance: BELINOSTAT
     Indication: MYELODYSPLASTIC SYNDROME
  7. VIDAZA [Suspect]
     Active Substance: AZACITIDINE
     Indication: CHRONIC MYELOMONOCYTIC LEUKAEMIA
  8. BELINOSTAT [Suspect]
     Active Substance: BELINOSTAT
     Indication: CHRONIC MYELOMONOCYTIC LEUKAEMIA

REACTIONS (21)
  - Diarrhoea [Unknown]
  - Flushing [Unknown]
  - Mucosal inflammation [Unknown]
  - Device related infection [Unknown]
  - Bacteraemia [Unknown]
  - Hypotension [Unknown]
  - Neuropathy peripheral [Unknown]
  - Cellulitis [Unknown]
  - Fatigue [Unknown]
  - Dizziness [Unknown]
  - Liver function test abnormal [Unknown]
  - Thrombocytopenia [Unknown]
  - Injection site reaction [Unknown]
  - Vomiting [Unknown]
  - Disease progression [Fatal]
  - Electrocardiogram QT prolonged [Unknown]
  - Pneumonia [Unknown]
  - Nausea [Unknown]
  - Constipation [Unknown]
  - Decreased appetite [Unknown]
  - Neutropenia [Unknown]
